FAERS Safety Report 20418431 (Version 1)
Quarter: 2022Q1

REPORT INFORMATION
  Report Type: Spontaneous
  Country: US (occurrence: US)
  Receive Date: 20220202
  Receipt Date: 20220202
  Transmission Date: 20220423
  Serious: No
  Sender: FDA-Public Use
  Company Number: US-009507513-2202USA000277

PATIENT
  Sex: Male

DRUGS (1)
  1. ISENTRESS [Suspect]
     Active Substance: RALTEGRAVIR POTASSIUM
     Indication: Prophylaxis
     Dosage: 400 MILLIGRAM, TWICE A DAY FOR 14 DAYS X 2 PRESCRIPTIONS
     Route: 048

REACTIONS (1)
  - Irritability [Unknown]
